FAERS Safety Report 14838957 (Version 1)
Quarter: 2018Q2

REPORT INFORMATION
  Report Type: Spontaneous
  Country: US (occurrence: US)
  Receive Date: 20180418
  Receipt Date: 20180418
  Transmission Date: 20180711
  Serious: Yes (Hospitalization)
  Sender: FDA-Public Use
  Company Number: None

PATIENT
  Age: 69 Year
  Sex: Female

DRUGS (9)
  1. HUMATROPE [Suspect]
     Active Substance: SOMATROPIN
     Indication: HYPOPITUITARISM
     Route: 030
     Dates: start: 20130301
  2. AMOX/KCLAV [Concomitant]
  3. METOPROLOL. [Concomitant]
     Active Substance: METOPROLOL
  4. TERCONAZOLE CRE [Concomitant]
  5. MULTI VITAMIN [Concomitant]
     Active Substance: VITAMINS
  6. PLAVIX [Concomitant]
     Active Substance: CLOPIDOGREL BISULFATE
  7. VITAMIN D [Concomitant]
     Active Substance: CHOLECALCIFEROL
  8. SERTRALINE [Concomitant]
     Active Substance: SERTRALINE HYDROCHLORIDE
  9. LISINOPRIL. [Concomitant]
     Active Substance: LISINOPRIL

REACTIONS (3)
  - Fall [None]
  - Drug dose omission [None]
  - Rib fracture [None]

NARRATIVE: CASE EVENT DATE: 201804
